FAERS Safety Report 5844918-1 (Version None)
Quarter: 2008Q3

REPORT INFORMATION
  Report Type: 
  Country: None (occurrence: None)
  Receive Date: 20080814
  Receipt Date: 20080804
  Transmission Date: 20090109
  Serious: Yes (Hospitalization, Other)
  Sender: FDA-Public Use
  Company Number: US-JNJFOC-20080800793

PATIENT
  Sex: Female
  Weight: 43.4 kg

DRUGS (6)
  1. REMICADE [Suspect]
     Route: 042
  2. REMICADE [Suspect]
     Indication: INFLAMMATORY BOWEL DISEASE
     Route: 042
  3. 5-ASA [Concomitant]
  4. AZATHIOPRINE [Concomitant]
  5. MERCAPTOPURINE [Concomitant]
  6. MERCAPTOPURINE [Concomitant]

REACTIONS (1)
  - INTESTINAL STENOSIS [None]
